FAERS Safety Report 10982349 (Version 2)
Quarter: 2015Q2

REPORT INFORMATION
  Report Type: Spontaneous
  Country: US (occurrence: US)
  Receive Date: 20150403
  Receipt Date: 20150519
  Transmission Date: 20150821
  Serious: No
  Sender: FDA-Public Use
  Company Number: US-PFIZER INC-2015017480

PATIENT
  Age: 92 Year
  Sex: Female

DRUGS (1)
  1. LYRICA [Suspect]
     Active Substance: PREGABALIN
     Indication: NEURALGIA
     Dosage: 200 MG, 2X/DAY
     Dates: start: 20141028

REACTIONS (6)
  - Nausea [Unknown]
  - Swollen tongue [Unknown]
  - Gingival swelling [Unknown]
  - Intentional product misuse [Unknown]
  - Fatigue [Unknown]
  - Drug ineffective [Unknown]
